FAERS Safety Report 16639298 (Version 4)
Quarter: 2020Q2

REPORT INFORMATION
  Report Type: Report from Study
  Country: US (occurrence: US)
  Receive Date: 20190726
  Receipt Date: 20200401
  Transmission Date: 20200713
  Serious: Yes (Hospitalization)
  Sender: FDA-Public Use
  Company Number: US-ACTELION-A-NJ2018-168445

PATIENT
  Sex: Female
  Weight: 63.49 kg

DRUGS (6)
  1. VELETRI [Suspect]
     Active Substance: EPOPROSTENOL
     Dosage: 57 NG/KG, PER MIN
     Route: 042
     Dates: start: 201407
  2. ELIQUIS [Concomitant]
     Active Substance: APIXABAN
  3. VELETRI [Suspect]
     Active Substance: EPOPROSTENOL
     Dosage: UNK
     Route: 042
  4. EPOPROSTENOL TEVA [Concomitant]
     Active Substance: EPOPROSTENOL SODIUM
  5. VELETRI [Suspect]
     Active Substance: EPOPROSTENOL
     Indication: PULMONARY ARTERIAL HYPERTENSION
     Dosage: 57 NG/KG, PER MIN
     Route: 042
     Dates: start: 201407
  6. REVATIO [Concomitant]
     Active Substance: SILDENAFIL CITRATE

REACTIONS (18)
  - Diarrhoea [Unknown]
  - Influenza like illness [Unknown]
  - Pruritus [Unknown]
  - Chest pain [Unknown]
  - Dyspnoea [Unknown]
  - Headache [Unknown]
  - Chest discomfort [Recovering/Resolving]
  - Dyspnoea exertional [Unknown]
  - Myalgia [Unknown]
  - Pulmonary arterial hypertension [Unknown]
  - Nausea [Unknown]
  - Abdominal discomfort [Unknown]
  - Facial paralysis [Unknown]
  - Dizziness [Recovering/Resolving]
  - Rash [Unknown]
  - Oropharyngeal pain [Unknown]
  - Pain in jaw [Unknown]
  - Catheter site cellulitis [Unknown]
